FAERS Safety Report 4726118-1 (Version None)
Quarter: 2005Q3

REPORT INFORMATION
  Report Type: 
  Country: None (occurrence: None)
  Receive Date: 20050725
  Receipt Date: 20050712
  Transmission Date: 20060218
  Serious: Yes (Hospitalization)
  Sender: FDA-Public Use
  Company Number: CIP05001656

PATIENT
  Age: 67 Year
  Sex: Female
  Weight: 46 kg

DRUGS (5)
  1. ACTONEL [Suspect]
     Indication: OSTEOPOROSIS
     Dosage: 2.5 MG DAILY, ORAL
     Route: 048
     Dates: start: 20050405, end: 20050606
  2. PROGRAF [Concomitant]
  3. CELLCEPT [Concomitant]
  4. PREDNISOLONE [Concomitant]
  5. ALFAROL (ALFACALCIDOL) [Concomitant]

REACTIONS (6)
  - GLYCOSYLATED HAEMOGLOBIN INCREASED [None]
  - HYPERCALCAEMIA [None]
  - LABORATORY TEST ABNORMAL [None]
  - NEPHROCALCINOSIS [None]
  - PLATELET COUNT INCREASED [None]
  - RENAL IMPAIRMENT [None]
